FAERS Safety Report 21042016 (Version 7)
Quarter: 2022Q4

REPORT INFORMATION
  Report Type: Report from Study
  Country: US (occurrence: US)
  Receive Date: 20220705
  Receipt Date: 20221220
  Transmission Date: 20230113
  Serious: Yes (Hospitalization)
  Sender: FDA-Public Use
  Company Number: US-NOVARTISPH-NVSC2022US152447

PATIENT
  Sex: Female
  Weight: 74.83 kg

DRUGS (9)
  1. TREPROSTINIL [Suspect]
     Active Substance: TREPROSTINIL
     Indication: Pulmonary arterial hypertension
     Dosage: 1 NG/KG/MIN, CONT (STRENGTH: 2.5 MG/ML)
     Route: 058
     Dates: start: 20220624
  2. TREPROSTINIL [Suspect]
     Active Substance: TREPROSTINIL
     Dosage: 5 NG/KG/MIN, CONT (STRENGTH: 2.5 MG/ML)
     Route: 058
     Dates: start: 20220723
  3. TREPROSTINIL [Suspect]
     Active Substance: TREPROSTINIL
     Dosage: 3 NG/KG/MIN, CONT (STRENGTH: 2.5 MG/ML)
     Route: 058
  4. TREPROSTINIL [Suspect]
     Active Substance: TREPROSTINIL
     Dosage: 15 NG/KG/MIN, CONT (STRENGTH: 2.5 MG/ML)
     Route: 058
  5. TREPROSTINIL [Suspect]
     Active Substance: TREPROSTINIL
     Dosage: 21 NG/KG/MIN, CONT (STRENGTH: 5 MG/ML)
     Route: 058
  6. TADALAFIL [Suspect]
     Active Substance: TADALAFIL
     Indication: Product used for unknown indication
     Dosage: UNK
     Route: 065
  7. OFEV [Concomitant]
     Active Substance: NINTEDANIB
     Indication: Product used for unknown indication
     Dosage: UNK
     Route: 065
  8. AMBRISENTAN [Concomitant]
     Active Substance: AMBRISENTAN
     Indication: Product used for unknown indication
     Dosage: UNK
     Route: 065
  9. BYSTOLIC [Concomitant]
     Active Substance: NEBIVOLOL HYDROCHLORIDE
     Indication: Product used for unknown indication
     Dosage: 5 MG, QD
     Route: 065
     Dates: end: 20220722

REACTIONS (11)
  - Epistaxis [Unknown]
  - Ear haemorrhage [Unknown]
  - Eye haemorrhage [Unknown]
  - Urinary tract infection [Unknown]
  - Nasal congestion [Unknown]
  - Sinusitis [Unknown]
  - Dyspnoea [Unknown]
  - Injection site erythema [Unknown]
  - Injection site pain [Unknown]
  - Hypotension [Unknown]
  - Fatigue [Unknown]
